FAERS Safety Report 21134735 (Version 1)
Quarter: 2022Q3

REPORT INFORMATION
  Report Type: Spontaneous
  Country: KR (occurrence: KR)
  Receive Date: 20220727
  Receipt Date: 20220727
  Transmission Date: 20221027
  Serious: Yes (Death, Other)
  Sender: FDA-Public Use
  Company Number: KR-SA-2022SA291878

PATIENT
  Age: 53 Year
  Sex: Male

DRUGS (17)
  1. ANTI-THYMOCYTE GLOBULIN (RABBIT) NOS [Suspect]
     Active Substance: LAPINE T-LYMPHOCYTE IMMUNE GLOBULIN
     Indication: Bone marrow conditioning regimen
     Dosage: 1.25 MG/KG, QD
  2. ANTI-THYMOCYTE GLOBULIN (RABBIT) NOS [Suspect]
     Active Substance: LAPINE T-LYMPHOCYTE IMMUNE GLOBULIN
     Indication: Acute myeloid leukaemia
  3. METHYLPREDNISOLONE [Suspect]
     Active Substance: METHYLPREDNISOLONE
     Indication: Diarrhoea
     Dosage: 62.5 MG, QD
  4. LEFLUNOMIDE [Suspect]
     Active Substance: LEFLUNOMIDE
     Dosage: 80 MG, QD
  5. LEFLUNOMIDE [Suspect]
     Active Substance: LEFLUNOMIDE
     Dosage: 20 MG, QD
  6. TACROLIMUS [Suspect]
     Active Substance: TACROLIMUS
     Indication: Immunosuppressant drug therapy
  7. FLUDARABINE [Concomitant]
     Active Substance: FLUDARABINE PHOSPHATE
     Indication: Bone marrow conditioning regimen
     Dosage: 30 MG/M2, QD
  8. FLUDARABINE [Concomitant]
     Active Substance: FLUDARABINE PHOSPHATE
     Indication: Acute myeloid leukaemia
  9. FOSCARNET [Concomitant]
     Active Substance: FOSCARNET
     Indication: Cytomegalovirus infection reactivation
     Dosage: 6000 MG, QD
  10. FOSCARNET [Concomitant]
     Active Substance: FOSCARNET
     Dosage: 3000 MG, QD
  11. BUSULFAN [Concomitant]
     Active Substance: BUSULFAN
     Indication: Bone marrow conditioning regimen
     Dosage: 3.2 MG/KG, QD
  12. BUSULFAN [Concomitant]
     Active Substance: BUSULFAN
     Indication: Acute myeloid leukaemia
  13. GANCICLOVIR [Concomitant]
     Active Substance: GANCICLOVIR
     Indication: Cytomegalovirus infection reactivation
     Dosage: 10 MG/KG, QD
     Route: 042
  14. GANCICLOVIR [Concomitant]
     Active Substance: GANCICLOVIR
     Indication: Viral haemorrhagic cystitis
     Dosage: 5 MG/KG, QD
     Route: 042
  15. GANCICLOVIR [Concomitant]
     Active Substance: GANCICLOVIR
     Dosage: 300 MG, QD
     Route: 042
  16. VORICONAZOLE [Concomitant]
     Active Substance: VORICONAZOLE
     Indication: Prophylaxis
  17. SODIUM CHLORIDE [Concomitant]
     Active Substance: SODIUM CHLORIDE

REACTIONS (7)
  - Cytomegalovirus infection reactivation [Recovered/Resolved]
  - Viral haemorrhagic cystitis [Unknown]
  - BK virus infection [Unknown]
  - Meningoencephalitis viral [Fatal]
  - Confusional state [Fatal]
  - Multiple organ dysfunction syndrome [Fatal]
  - Respiratory acidosis [Fatal]
